FAERS Safety Report 16062610 (Version 1)
Quarter: 2019Q1

REPORT INFORMATION
  Report Type: Spontaneous
  Country: US (occurrence: US)
  Receive Date: 20190312
  Receipt Date: 20190312
  Transmission Date: 20190418
  Serious: No
  Sender: FDA-Public Use
  Company Number: US-ASTRAZENECA-2019SE22928

PATIENT
  Age: 992 Month
  Sex: Female
  Weight: 60.3 kg

DRUGS (2)
  1. BYDUREON [Suspect]
     Active Substance: EXENATIDE
     Indication: TYPE 2 DIABETES MELLITUS
     Dosage: SINGLE DOSE TRAY, 2 MG ONCE A WEEK
     Route: 058
  2. BYDUREON [Suspect]
     Active Substance: EXENATIDE
     Indication: TYPE 2 DIABETES MELLITUS
     Route: 058
     Dates: start: 20190120

REACTIONS (12)
  - Blood cholesterol abnormal [Unknown]
  - Gallbladder disorder [Unknown]
  - Cholelithiasis [Recovered/Resolved]
  - Body height decreased [Unknown]
  - Injection site pain [Recovered/Resolved]
  - Blood pressure abnormal [Unknown]
  - Weight decreased [Recovered/Resolved]
  - Injection site injury [Unknown]
  - Malaise [Recovered/Resolved]
  - Hypophagia [Recovered/Resolved]
  - Skin discolouration [Not Recovered/Not Resolved]
  - Injection site haemorrhage [Recovered/Resolved]

NARRATIVE: CASE EVENT DATE: 201809
